FAERS Safety Report 4865430-2 (Version None)
Quarter: 2005Q4

REPORT INFORMATION
  Report Type: 
  Country: None (occurrence: None)
  Receive Date: 20051219
  Receipt Date: 20051212
  Transmission Date: 20060501
  Serious: Yes (Life-Threatening, Hospitalization)
  Sender: FDA-Public Use
  Company Number: 2005-09-0223

PATIENT
  Age: 57 Year
  Sex: Male
  Weight: 71 kg

DRUGS (23)
  1. REBETOL [Suspect]
     Indication: HEPATITIS C
     Dosage: 800-400 MG QD ORAL
     Route: 048
     Dates: start: 20020102, end: 20020101
  2. REBETOL [Suspect]
     Indication: PROPHYLAXIS
     Dosage: 800-400 MG QD ORAL
     Route: 048
     Dates: start: 20020102, end: 20020101
  3. REBETOL [Suspect]
     Indication: HEPATITIS C
     Dosage: 800-400 MG QD ORAL
     Route: 048
     Dates: start: 20020101, end: 20020806
  4. REBETOL [Suspect]
     Indication: PROPHYLAXIS
     Dosage: 800-400 MG QD ORAL
     Route: 048
     Dates: start: 20020101, end: 20020806
  5. REBETOL [Suspect]
     Indication: HEPATITIS C
     Dosage: 800-400 MG QD ORAL
     Route: 048
     Dates: start: 20020102, end: 20020806
  6. REBETOL [Suspect]
     Indication: PROPHYLAXIS
     Dosage: 800-400 MG QD ORAL
     Route: 048
     Dates: start: 20020102, end: 20020806
  7. INTRON A [Suspect]
     Indication: HEPATITIS C
     Dosage: 6 MU TIW INTRAMUSCULAR
     Route: 030
     Dates: start: 20020102, end: 20020806
  8. INTRON A [Suspect]
     Indication: PROPHYLAXIS
     Dosage: 6 MU TIW INTRAMUSCULAR
     Route: 030
     Dates: start: 20020102, end: 20020806
  9. PROGRAF [Suspect]
     Indication: IMMUNOSUPPRESSION
     Dosage: 2.5 - REDUCED INTRAVENOU
     Route: 042
     Dates: start: 20011227, end: 20020101
  10. PROGRAF [Suspect]
     Indication: IMMUNOSUPPRESSION
     Dosage: 2.5 - REDUCED INTRAVENOU
     Route: 042
     Dates: start: 20020101, end: 20020101
  11. PROGRAF [Suspect]
     Indication: IMMUNOSUPPRESSION
     Dosage: 2.5 - REDUCED INTRAVENOU
     Route: 042
     Dates: start: 20020101, end: 20021101
  12. PROGRAF [Suspect]
     Indication: IMMUNOSUPPRESSION
     Dosage: SEE IMAGE
     Route: 048
     Dates: start: 20020101, end: 20020101
  13. PROGRAF [Suspect]
     Indication: IMMUNOSUPPRESSION
     Dosage: SEE IMAGE
     Route: 048
     Dates: start: 20020101, end: 20020101
  14. PROGRAF [Suspect]
     Indication: IMMUNOSUPPRESSION
     Dosage: SEE IMAGE
     Route: 048
     Dates: start: 20020101, end: 20021101
  15. PROGRAF [Suspect]
     Indication: IMMUNOSUPPRESSION
     Dosage: SEE IMAGE
     Route: 048
     Dates: start: 20020101, end: 20021101
  16. SOLU-MEDROL [Suspect]
     Indication: IMMUNOSUPPRESSION
     Dosage: SEE IMAGE
     Route: 042
     Dates: start: 20011226, end: 20020101
  17. SOLU-MEDROL [Suspect]
     Indication: IMMUNOSUPPRESSION
     Dosage: SEE IMAGE
     Route: 042
     Dates: start: 20020930, end: 20021002
  18. SOLU-MEDROL [Suspect]
     Indication: IMMUNOSUPPRESSION
     Dosage: SEE IMAGE
     Route: 042
     Dates: start: 20011226, end: 20021101
  19. SOLU-MEDROL [Suspect]
     Indication: IMMUNOSUPPRESSION
     Dosage: SEE IMAGE
     Route: 042
     Dates: start: 20021101, end: 20021101
  20. FAMOTIDINE [Suspect]
     Indication: GASTRIC ULCER
     Dosage: 40 MG, ORAL
     Route: 048
     Dates: end: 20020610
  21. MEDROL [Suspect]
     Indication: IMMUNOSUPPRESSION
     Dosage: 24 MG ORAL
     Route: 048
     Dates: start: 20020101
  22. MARZULENE S [Suspect]
     Indication: GASTRIC ULCER
     Dates: start: 20020910
  23. URSO TABLETS [Concomitant]

REACTIONS (8)
  - APLASTIC ANAEMIA [None]
  - BONE MARROW FAILURE [None]
  - DRUG EFFECT DECREASED [None]
  - EPSTEIN-BARR VIRUS TEST POSITIVE [None]
  - LYMPHADENOPATHY [None]
  - LYMPHOPROLIFERATIVE DISORDER [None]
  - PANCYTOPENIA [None]
  - PYREXIA [None]
